FAERS Safety Report 24196896 (Version 1)
Quarter: 2024Q3

REPORT INFORMATION
  Report Type: Report from Study
  Country: CA (occurrence: CA)
  Receive Date: 20240810
  Receipt Date: 20240810
  Transmission Date: 20241016
  Serious: Yes (Hospitalization, Other)
  Sender: ABBVIE
  Company Number: CA-ABBVIE-5871576

PATIENT
  Sex: Female

DRUGS (3)
  1. SKYRIZI [Suspect]
     Active Substance: RISANKIZUMAB-RZAA
     Indication: Crohn^s disease
     Route: 058
     Dates: start: 20240115
  2. SKYRIZI [Suspect]
     Active Substance: RISANKIZUMAB-RZAA
     Dosage: LAST ADMIN : 2023
     Route: 058
     Dates: start: 20230815
  3. CORTISONE [Suspect]
     Active Substance: CORTISONE
     Indication: Product used for unknown indication
     Route: 065

REACTIONS (17)
  - Bacterial infection [Unknown]
  - Cataract [Unknown]
  - Colectomy [Unknown]
  - Proctectomy [Unknown]
  - Stoma closure [Unknown]
  - Ileostomy [Unknown]
  - Kidney infection [Unknown]
  - Abscess [Unknown]
  - Haemorrhage [Unknown]
  - Pruritus [Recovered/Resolved]
  - Adverse drug reaction [Recovering/Resolving]
  - Fatigue [Unknown]
  - Balance disorder [Unknown]
  - Nausea [Unknown]
  - Vaginal odour [Unknown]
  - Flatulence [Unknown]
  - Insomnia [Unknown]

NARRATIVE: CASE EVENT DATE: 20230101
